FAERS Safety Report 25191995 (Version 1)
Quarter: 2025Q2

REPORT INFORMATION
  Report Type: Spontaneous
  Country: US (occurrence: None)
  Receive Date: 20250411
  Receipt Date: 20250411
  Transmission Date: 20250717
  Serious: Yes (Hospitalization)
  Sender: FDA-CTU
  Company Number: None

PATIENT
  Age: 77 Year
  Sex: Male

DRUGS (1)
  1. TASIGNA [Suspect]
     Active Substance: NILOTINIB
     Indication: Chronic myeloid leukaemia
     Dosage: FREQUENCY : TWICE A DAY;?
     Route: 048
     Dates: start: 20221203, end: 20250409

REACTIONS (4)
  - Atrial fibrillation [None]
  - Therapy cessation [None]
  - Pericardial effusion [None]
  - Pericarditis [None]

NARRATIVE: CASE EVENT DATE: 20250409
